FAERS Safety Report 7404191-X (Version None)
Quarter: 2011Q2

REPORT INFORMATION
  Report Type: 
  Country: None (occurrence: None)
  Receive Date: 20110408
  Receipt Date: 20110317
  Transmission Date: 20111010
  Serious: No
  Sender: FDA-Public Use
  Company Number: US-B.I. PHARMACEUTICALS,INC./RIDGEFIELD-2011-BP-09319BP

PATIENT
  Age: 64 Year
  Sex: Male

DRUGS (1)
  1. METACAM ORAL SUSPENSION [Suspect]
     Route: 031
     Dates: start: 20110317, end: 20110317

REACTIONS (2)
  - ACCIDENTAL EXPOSURE [None]
  - EYE IRRITATION [None]
